FAERS Safety Report 24760688 (Version 2)
Quarter: 2025Q4

REPORT INFORMATION
  Report Type: Spontaneous
  Country: EU (occurrence: EU)
  Receive Date: 20241220
  Receipt Date: 20251121
  Transmission Date: 20260117
  Serious: Yes (Other)
  Sender: PIERRE FABRE MEDICAMENT
  Company Number: EU-PFM-2024-06956

PATIENT

DRUGS (3)
  1. PROPRANOLOL [Suspect]
     Active Substance: PROPRANOLOL HYDROCHLORIDE
     Indication: Haemangioma
     Dosage: 2.6 MG/KG/DAY
     Route: 065
  2. PROPRANOLOL [Suspect]
     Active Substance: PROPRANOLOL HYDROCHLORIDE
     Dosage: 1.7 MG/KG/DAY
     Route: 065
  3. PREDNISONE [Suspect]
     Active Substance: PREDNISONE
     Indication: Haemangioma
     Dosage: 2 MG/KG/DAY
     Route: 065

REACTIONS (3)
  - Cushing^s syndrome [Unknown]
  - Product administered to patient of inappropriate age [Unknown]
  - Off label use [Unknown]
